FAERS Safety Report 4736545-4 (Version None)
Quarter: 2005Q3

REPORT INFORMATION
  Report Type: 
  Country: None (occurrence: None)
  Receive Date: 20050727
  Receipt Date: 20050606
  Transmission Date: 20060218
  Serious: Yes (Hospitalization)
  Sender: FDA-Public Use
  Company Number: 2005FR-00147

PATIENT
  Age: 42 Year
  Sex: Male

DRUGS (2)
  1. IBUPROFEN [Suspect]
     Dosage: 200 MG ORAL
     Route: 048
     Dates: start: 20050413, end: 20050420
  2. TABLET VALSARTAN [Concomitant]

REACTIONS (5)
  - GASTROOESOPHAGEAL REFLUX DISEASE [None]
  - HAEMATEMESIS [None]
  - HAEMOGLOBIN DECREASED [None]
  - OESOPHAGEAL ULCER [None]
  - OESOPHAGITIS [None]
